FAERS Safety Report 6930766-8 (Version None)
Quarter: 2010Q3

REPORT INFORMATION
  Report Type: 
  Country: None (occurrence: None)
  Receive Date: 20100818
  Receipt Date: 20100818
  Transmission Date: 20110219
  Serious: Yes (Other)
  Sender: FDA-Public Use
  Company Number: None

PATIENT
  Age: 54 Year
  Sex: Male

DRUGS (1)
  1. LISINOPRIL [Suspect]
     Indication: HYPERTENSION
     Dosage: 20MG DAILY ORAL
     Route: 048
     Dates: start: 20100729, end: 20100803

REACTIONS (2)
  - HYPOTENSION [None]
  - PRODUCT SUBSTITUTION ISSUE [None]
